FAERS Safety Report 12669041 (Version 1)
Quarter: 2016Q3

REPORT INFORMATION
  Report Type: Report from Study
  Country: CO (occurrence: CO)
  Receive Date: 20160819
  Receipt Date: 20160819
  Transmission Date: 20161109
  Serious: Yes (Hospitalization, Other)
  Sender: FDA-Public Use
  Company Number: CO-AMGEN-COLSL2016106859

PATIENT
  Age: 66 Year
  Sex: Male
  Weight: 71 kg

DRUGS (5)
  1. OXALIPLATIN. [Concomitant]
     Active Substance: OXALIPLATIN
     Dosage: UNK
  2. FOLINIC ACID [Concomitant]
     Active Substance: LEUCOVORIN
     Dosage: UNK
  3. DESONIDE. [Concomitant]
     Active Substance: DESONIDE
     Dosage: UNK
  4. VECTIBIX [Suspect]
     Active Substance: PANITUMUMAB
     Indication: COLON CANCER
     Dosage: 420 MG, Q2WK (FORTNIGHTLY)
     Route: 042
     Dates: start: 20151214
  5. FLUOROURACIL. [Concomitant]
     Active Substance: FLUOROURACIL
     Dosage: UNK

REACTIONS (3)
  - Pyrexia [Not Recovered/Not Resolved]
  - Headache [Not Recovered/Not Resolved]
  - Vomiting [Not Recovered/Not Resolved]

NARRATIVE: CASE EVENT DATE: 20160810
